FAERS Safety Report 7461188-1 (Version None)
Quarter: 2011Q2

REPORT INFORMATION
  Report Type: 
  Country: None (occurrence: None)
  Receive Date: 20110505
  Receipt Date: 20110119
  Transmission Date: 20111010
  Serious: Yes (Other)
  Sender: FDA-Public Use
  Company Number: DE-ASTRAZENECA-2011SE05435

PATIENT

DRUGS (1)
  1. ANTRA [Suspect]
     Route: 048

REACTIONS (6)
  - HEADACHE [None]
  - ARRHYTHMIA [None]
  - DEAFNESS [None]
  - VERTIGO [None]
  - VISUAL IMPAIRMENT [None]
  - TACHYCARDIA [None]
